FAERS Safety Report 10829412 (Version 2)
Quarter: 2015Q3

REPORT INFORMATION
  Report Type: Spontaneous
  Country: BR (occurrence: BR)
  Receive Date: 20150219
  Receipt Date: 20150723
  Transmission Date: 20151125
  Serious: Yes (Disabling)
  Sender: FDA-Public Use
  Company Number: BR-ASTRAZENECA-2015SE15123

PATIENT
  Age: 400 Month
  Sex: Female

DRUGS (6)
  1. NEXIUM [Suspect]
     Active Substance: ESOMEPRAZOLE MAGNESIUM
     Indication: GASTROOESOPHAGEAL REFLUX DISEASE
     Route: 048
     Dates: start: 201501, end: 201502
  2. NEXIUM [Suspect]
     Active Substance: ESOMEPRAZOLE MAGNESIUM
     Indication: GASTROOESOPHAGEAL REFLUX DISEASE
     Route: 048
     Dates: start: 201502
  3. PREGNANCY MULTIVITAMINS [Concomitant]
     Indication: VITAMIN SUPPLEMENTATION
     Route: 048
  4. BUSCOPAN [Concomitant]
     Active Substance: BUTYLSCOPOLAMINE BROMIDE
     Indication: PELVIC PAIN
     Dosage: AS REQUIRED
     Route: 048
  5. UTROGESTAN [Concomitant]
     Active Substance: PROGESTERONE
     Indication: UTERINE CONTRACTIONS ABNORMAL
     Dosage: TWO TIMES A DAY
     Route: 048
  6. INHIBIN [Concomitant]
     Indication: UTERINE CONTRACTIONS ABNORMAL
     Dosage: FOUR TIMES A DAY
     Route: 048

REACTIONS (3)
  - Off label use [Recovered/Resolved]
  - Exposure during pregnancy [Recovered/Resolved]
  - Uterine hypertonus [Recovered/Resolved]

NARRATIVE: CASE EVENT DATE: 201501
